FAERS Safety Report 19792888 (Version 2)
Quarter: 2021Q4

REPORT INFORMATION
  Report Type: Spontaneous
  Country: JP (occurrence: JP)
  Receive Date: 20210906
  Receipt Date: 20211021
  Transmission Date: 20220304
  Serious: No
  Sender: FDA-Public Use
  Company Number: JP-CHUGAI-2021013943

PATIENT
  Age: 9 Decade
  Sex: Female

DRUGS (2)
  1. TECENTRIQ [Suspect]
     Active Substance: ATEZOLIZUMAB
     Indication: Hepatocellular carcinoma
     Route: 041
     Dates: start: 20210806, end: 202108
  2. AVASTIN [Suspect]
     Active Substance: BEVACIZUMAB
     Indication: Hepatocellular carcinoma
     Route: 041
     Dates: start: 20210806, end: 202108

REACTIONS (2)
  - Stomatitis [Not Recovered/Not Resolved]
  - Hyperglycaemia [Not Recovered/Not Resolved]

NARRATIVE: CASE EVENT DATE: 20210827
